FAERS Safety Report 24823209 (Version 1)
Quarter: 2025Q1

REPORT INFORMATION
  Report Type: Spontaneous
  Country: US (occurrence: US)
  Receive Date: 20250109
  Receipt Date: 20250109
  Transmission Date: 20250408
  Serious: No
  Sender: CSL BEHRING
  Company Number: US-BEH-2024190714

PATIENT
  Sex: Female

DRUGS (1)
  1. HIZENTRA [Suspect]
     Active Substance: HUMAN IMMUNOGLOBULIN G
     Dosage: 4 G, QW
     Route: 065

REACTIONS (4)
  - Product packaging difficult to open [Unknown]
  - Adverse event [Unknown]
  - Fear of injection [Unknown]
  - Patient dissatisfaction with treatment [Unknown]
